FAERS Safety Report 5197504-3 (Version None)
Quarter: 2006Q4

REPORT INFORMATION
  Report Type: 
  Country: None (occurrence: None)
  Receive Date: 20060926
  Receipt Date: 20060703
  Transmission Date: 20070319
  Serious: No
  Sender: FDA-Public Use
  Company Number: SP00866

PATIENT
  Age: 65 Year
  Sex: Female
  Weight: 63.5036 kg

DRUGS (2)
  1. XIFAXAN [Suspect]
     Indication: BACTERIA BLOOD IDENTIFIED
     Dosage: 200 MG TABLET/ TWO DOSES, ORAL
     Route: 048
     Dates: start: 20060124, end: 20060125
  2. PRILOSEC [Concomitant]

REACTIONS (3)
  - DEHYDRATION [None]
  - MALAISE [None]
  - VOMITING [None]
